FAERS Safety Report 6479042-0 (Version None)
Quarter: 2009Q4

REPORT INFORMATION
  Report Type: 
  Country: None (occurrence: None)
  Receive Date: 20091207
  Receipt Date: 20090209
  Transmission Date: 20100525
  Serious: No
  Sender: FDA-Public Use
  Company Number: US-AMGEN-KDL333003

PATIENT
  Sex: Female

DRUGS (3)
  1. ENBREL [Suspect]
     Indication: RHEUMATOID ARTHRITIS
     Route: 058
     Dates: start: 20090121
  2. PLAQUENIL [Concomitant]
     Route: 048
  3. AZULFIDINE [Concomitant]
     Route: 048

REACTIONS (3)
  - ABDOMINAL DISCOMFORT [None]
  - INJECTION SITE HAEMATOMA [None]
  - SINUS DISORDER [None]
